FAERS Safety Report 19801281 (Version 1)
Quarter: 2021Q3

REPORT INFORMATION
  Report Type: Report from Study
  Country: US (occurrence: US)
  Receive Date: 20210908
  Receipt Date: 20210908
  Transmission Date: 20211014
  Serious: Yes (Hospitalization, Disabling)
  Sender: FDA-Public Use
  Company Number: US-SA-2021SA255566

PATIENT
  Age: 62 Year
  Sex: Male

DRUGS (2)
  1. DUPILUMAB [Suspect]
     Active Substance: DUPILUMAB
     Indication: SKIN INFECTION
     Dosage: 600 MG, 1X
     Route: 058
     Dates: start: 2020
  2. DUPILUMAB [Suspect]
     Active Substance: DUPILUMAB
     Indication: DERMATITIS ATOPIC
     Dosage: 300 MG, QOW
     Route: 058

REACTIONS (13)
  - Pain of skin [Unknown]
  - Asthenia [Unknown]
  - Product preparation error [Unknown]
  - Dizziness [Unknown]
  - Skin ulcer [Unknown]
  - Blood iron decreased [Unknown]
  - Bedridden [Unknown]
  - Alopecia [Unknown]
  - Fatigue [Unknown]
  - Product use in unapproved indication [Unknown]
  - Muscle spasms [Unknown]
  - Product dose omission issue [Unknown]
  - Full blood count decreased [Recovering/Resolving]

NARRATIVE: CASE EVENT DATE: 202104
